FAERS Safety Report 14126602 (Version 1)
Quarter: 2017Q4

REPORT INFORMATION
  Report Type: Spontaneous
  Country: US (occurrence: US)
  Receive Date: 20171025
  Receipt Date: 20171025
  Transmission Date: 20180321
  Serious: Yes (Hospitalization)
  Sender: FDA-Public Use
  Company Number: US-BAUSCH-BL-2017-014214

PATIENT
  Age: 70 Year
  Sex: Female
  Weight: 48 kg

DRUGS (12)
  1. ATIVAN [Suspect]
     Active Substance: LORAZEPAM
     Route: 042
     Dates: start: 20170308
  2. OXYCODONE [Concomitant]
     Active Substance: OXYCODONE
     Dates: start: 20170206
  3. NIVOLUMAB [Suspect]
     Active Substance: NIVOLUMAB
     Dosage: QOW(EVERY OTHER WEEK)
     Route: 042
     Dates: start: 20170221, end: 20170308
  4. KLONOPIN [Concomitant]
     Active Substance: CLONAZEPAM
     Indication: PRODUCT USED FOR UNKNOWN INDICATION
     Dates: start: 20161027
  5. LYRICA [Concomitant]
     Active Substance: PREGABALIN
     Indication: PRODUCT USED FOR UNKNOWN INDICATION
  6. INCB024360(EPACADOSTAT) [Suspect]
     Active Substance: EPACADOSTAT
     Route: 048
     Dates: start: 20170221, end: 20170223
  7. ATIVAN [Suspect]
     Active Substance: LORAZEPAM
     Indication: ANXIETY
     Dosage: PRN(WHEN NECESSARY)
     Route: 048
     Dates: start: 20170219
  8. NIVOLUMAB [Suspect]
     Active Substance: NIVOLUMAB
     Indication: NON-SMALL CELL LUNG CANCER
     Dosage: QOW(EVERY OTHER WEEK)
     Route: 042
     Dates: start: 20170130, end: 20170213
  9. INCB024360(EPACADOSTAT) [Suspect]
     Active Substance: EPACADOSTAT
     Indication: NON-SMALL CELL LUNG CANCER
     Route: 048
     Dates: start: 20170130, end: 20170209
  10. OXYCODONE [Concomitant]
     Active Substance: OXYCODONE
     Indication: PRODUCT USED FOR UNKNOWN INDICATION
     Dates: start: 20170130
  11. ZYPREXA [Concomitant]
     Active Substance: OLANZAPINE
     Indication: PRODUCT USED FOR UNKNOWN INDICATION
     Dates: start: 20170302
  12. NIVOLUMAB [Suspect]
     Active Substance: NIVOLUMAB
     Route: 065
     Dates: start: 20170313

REACTIONS (4)
  - Seizure [Recovered/Resolved]
  - Generalised tonic-clonic seizure [None]
  - Fatigue [Unknown]
  - Somnolence [Unknown]

NARRATIVE: CASE EVENT DATE: 20170223
